FAERS Safety Report 15613763 (Version 1)
Quarter: 2018Q4

REPORT INFORMATION
  Report Type: Spontaneous
  Country: IT (occurrence: IT)
  Receive Date: 20181113
  Receipt Date: 20181113
  Transmission Date: 20190205
  Serious: Yes (Death)
  Sender: FDA-Public Use
  Company Number: IT-PURDUE PHARMA-GBR-2018-0061497

PATIENT
  Age: 28 Year
  Sex: Female

DRUGS (6)
  1. MAGNESIUM SULPHATE                 /01097001/ [Suspect]
     Active Substance: MAGNESIUM SULFATE
     Indication: ASTHMA
     Route: 042
  2. NON-PMN THEOPHYLLINE [Suspect]
     Active Substance: THEOPHYLLINE ANHYDROUS
     Indication: ASTHMA
  3. ADRENALINE                         /00003901/ [Suspect]
     Active Substance: EPINEPHRINE
     Indication: ASTHMA
     Route: 042
  4. NON-PMN THEOPHYLLINE [Suspect]
     Active Substance: THEOPHYLLINE ANHYDROUS
     Indication: RESPIRATORY FAILURE
     Route: 042
  5. ADRENALINE                         /00003901/ [Suspect]
     Active Substance: EPINEPHRINE
     Indication: RESPIRATORY FAILURE
  6. MAGNESIUM SULPHATE                 /01097001/ [Suspect]
     Active Substance: MAGNESIUM SULFATE
     Indication: RESPIRATORY FAILURE

REACTIONS (2)
  - Drug ineffective for unapproved indication [Fatal]
  - Death [Fatal]
